FAERS Safety Report 16160917 (Version 3)
Quarter: 2019Q2

REPORT INFORMATION
  Report Type: Report from Study
  Country: RO (occurrence: RO)
  Receive Date: 20190405
  Receipt Date: 20190511
  Transmission Date: 20190711
  Serious: Yes (Hospitalization)
  Sender: FDA-Public Use
  Company Number: RO-ROCHE-2131634

PATIENT
  Sex: Male
  Weight: 70 kg

DRUGS (5)
  1. TRAMADOL. [Concomitant]
     Active Substance: TRAMADOL
     Indication: PRODUCT USED FOR UNKNOWN INDICATION
     Route: 065
  2. AFLAMIL [Concomitant]
     Active Substance: ACECLOFENAC
     Indication: PRODUCT USED FOR UNKNOWN INDICATION
     Route: 065
  3. MILURIT [Concomitant]
     Active Substance: ALLOPURINOL
     Indication: PRODUCT USED FOR UNKNOWN INDICATION
     Route: 065
  4. COLCHICINE. [Concomitant]
     Active Substance: COLCHICINE
     Indication: PRODUCT USED FOR UNKNOWN INDICATION
     Route: 065
  5. ROACTEMRA [Suspect]
     Active Substance: TOCILIZUMAB
     Indication: RHEUMATOID ARTHRITIS
     Route: 042

REACTIONS (8)
  - Weight decreased [Unknown]
  - Pain [Recovering/Resolving]
  - Swelling [Recovered/Resolved]
  - Asthenia [Not Recovered/Not Resolved]
  - Finger deformity [Not Recovered/Not Resolved]
  - Ill-defined disorder [Unknown]
  - Gait disturbance [Recovering/Resolving]
  - Intervertebral disc operation [Unknown]
